FAERS Safety Report 9937245 (Version 2)
Quarter: 2014Q2

REPORT INFORMATION
  Report Type: Spontaneous
  Country: IE (occurrence: FR)
  Receive Date: 20140302
  Receipt Date: 20140409
  Transmission Date: 20141212
  Serious: Yes (Hospitalization)
  Sender: FDA-Public Use
  Company Number: 2014SP001011

PATIENT
  Age: 12 Year
  Sex: Male

DRUGS (14)
  1. VANCOMYCIN [Suspect]
     Indication: PYREXIA
     Route: 042
     Dates: start: 20130521, end: 20130521
  2. CEFTAZIDIME [Suspect]
     Indication: PYREXIA
     Dates: start: 20130521, end: 20130521
  3. ZOVIRAX /00587301/ [Suspect]
     Indication: PROPHYLAXIS
     Route: 042
     Dates: start: 20130523
  4. IMIPENEM [Suspect]
     Indication: PYREXIA
     Route: 042
     Dates: start: 20130522
  5. CILASTATIN [Suspect]
     Indication: PYREXIA
     Route: 042
     Dates: start: 20130522
  6. CANCIDAS [Suspect]
     Indication: PROPHYLAXIS
     Route: 042
     Dates: start: 20130523
  7. ONDANSETRON HYDROCHLORIDE [Concomitant]
     Dates: start: 201305
  8. CYCLOPHOSPHAMIDE [Concomitant]
     Dates: start: 201305
  9. UROMITEXAN [Concomitant]
     Dates: start: 201305
  10. METHOTREXATE [Concomitant]
     Dates: start: 201305
  11. CYTARABINE [Concomitant]
     Dates: start: 201305
  12. METHYLPREDNISOLONE [Concomitant]
     Dates: start: 201305
  13. NELARABINE [Concomitant]
     Dates: start: 201305
  14. ETOPOSIDE [Concomitant]
     Dates: start: 201305

REACTIONS (3)
  - Thrombocytopenia [Not Recovered/Not Resolved]
  - Agranulocytosis [Not Recovered/Not Resolved]
  - Leukopenia [Not Recovered/Not Resolved]
